FAERS Safety Report 19139299 (Version 1)
Quarter: 2021Q2

REPORT INFORMATION
  Report Type: Spontaneous
  Country: US (occurrence: US)
  Receive Date: 20210414
  Receipt Date: 20210414
  Transmission Date: 20210717
  Serious: No
  Sender: FDA-Public Use
  Company Number: None

PATIENT
  Age: 40 Year

DRUGS (5)
  1. CELLCEPT [Suspect]
     Active Substance: MYCOPHENOLATE MOFETIL\MYCOPHENOLATE MOFETIL HYDROCHLORIDE
  2. IMURAN [Suspect]
     Active Substance: AZATHIOPRINE
  3. CYCLOSPORINE. [Suspect]
     Active Substance: CYCLOSPORINE
  4. HUMIRA [Suspect]
     Active Substance: ADALIMUMAB
  5. METHOTREXATE. [Suspect]
     Active Substance: METHOTREXATE

REACTIONS (3)
  - Intraductal proliferative breast lesion [None]
  - Sarcoma [None]
  - Lymphoma [None]
